FAERS Safety Report 22160132 (Version 1)
Quarter: 2023Q1

REPORT INFORMATION
  Report Type: Spontaneous
  Country: JP (occurrence: JP)
  Receive Date: 20230331
  Receipt Date: 20230331
  Transmission Date: 20230418
  Serious: Yes (Death)
  Sender: FDA-Public Use
  Company Number: JP-TAIHO-2023-001522

PATIENT
  Age: 78 Year
  Sex: Female

DRUGS (5)
  1. ABRAXANE [Suspect]
     Active Substance: PACLITAXEL
     Indication: Pancreatic carcinoma metastatic
     Dosage: FREQUENCY-2 WEEK, DOSE NOT REPORTED, 4 CYCLES.
     Route: 041
  2. PALONOSETRON [Suspect]
     Active Substance: PALONOSETRON
     Indication: Prophylaxis of nausea and vomiting
     Dosage: DOSE NOT REPORTED, ON DAY 1
     Route: 042
  3. FOSAPREPITANT [Concomitant]
     Active Substance: FOSAPREPITANT
     Indication: Prophylaxis of nausea and vomiting
     Dosage: DOSE NOT REPORTED, ON DAY 1
     Route: 041
  4. DEXAMETHASONE [Concomitant]
     Active Substance: DEXAMETHASONE
     Indication: Prophylaxis of nausea and vomiting
     Dosage: DOSE NOT REPORTED, ON DAY 1
     Route: 041
  5. GEMZAR [Concomitant]
     Active Substance: GEMCITABINE HYDROCHLORIDE
     Indication: Pancreatic carcinoma metastatic
     Dosage: DOSE NOT REPORTED, 4 CYCLES
     Route: 041

REACTIONS (3)
  - Vomiting [Unknown]
  - Weight decreased [Unknown]
  - Device occlusion [Fatal]
